FAERS Safety Report 7071640-9 (Version None)
Quarter: 2010Q4

REPORT INFORMATION
  Report Type: 
  Country: None (occurrence: None)
  Receive Date: 20101029
  Receipt Date: 20100607
  Transmission Date: 20110411
  Serious: No
  Sender: FDA-Public Use
  Company Number: A0809828A

PATIENT
  Age: 44 Year
  Sex: Female

DRUGS (2)
  1. ADVAIR DISKUS 100/50 [Suspect]
     Dosage: 1PUFF TWICE PER DAY
     Route: 055
  2. ALBUTEROL [Suspect]
     Route: 055

REACTIONS (5)
  - ARTHRALGIA [None]
  - FALL [None]
  - INHALATION THERAPY [None]
  - MEDICATION ERROR [None]
  - TREATMENT NONCOMPLIANCE [None]
